FAERS Safety Report 10702667 (Version 3)
Quarter: 2015Q1

REPORT INFORMATION
  Report Type: Spontaneous
  Country: US (occurrence: US)
  Receive Date: 20150109
  Receipt Date: 20150216
  Transmission Date: 20150721
  Serious: No
  Sender: FDA-Public Use
  Company Number: US-GLAXOSMITHKLINE-US2014GSK045659

PATIENT
  Age: 61 Year
  Sex: Male

DRUGS (3)
  1. FLOVENT DISKUS [Suspect]
     Active Substance: FLUTICASONE PROPIONATE
     Indication: ASTHMA
     Dosage: 1 PUFF(S), QD
     Dates: start: 20141210
  2. LIPITOR [Concomitant]
     Active Substance: ATORVASTATIN CALCIUM
  3. TRAZODONE [Concomitant]
     Active Substance: TRAZODONE HYDROCHLORIDE

REACTIONS (5)
  - Respiratory tract irritation [Not Recovered/Not Resolved]
  - Product quality issue [Unknown]
  - Throat irritation [Not Recovered/Not Resolved]
  - Oropharyngeal pain [Unknown]
  - Respiratory tract irritation [Not Recovered/Not Resolved]

NARRATIVE: CASE EVENT DATE: 20141212
